FAERS Safety Report 23982967 (Version 1)
Quarter: 2024Q2

REPORT INFORMATION
  Report Type: Spontaneous
  Country: PT (occurrence: PT)
  Receive Date: 20240617
  Receipt Date: 20240617
  Transmission Date: 20240716
  Serious: Yes (Hospitalization)
  Sender: FDA-Public Use
  Company Number: PT-PAIPHARMA-2024-PT-000057

PATIENT
  Age: 57 Year
  Sex: Female

DRUGS (3)
  1. LITHIUM [Suspect]
     Active Substance: LITHIUM
     Indication: Bipolar I disorder
  2. VALPROATE SODIUM [Concomitant]
     Active Substance: VALPROATE SODIUM
     Indication: Bipolar disorder
  3. LORAZEPAM [Concomitant]
     Active Substance: LORAZEPAM
     Indication: Bipolar disorder

REACTIONS (4)
  - Nephrogenic diabetes insipidus [Unknown]
  - Pancreatitis acute [Recovered/Resolved]
  - Osmotic demyelination syndrome [Recovering/Resolving]
  - Hyperparathyroidism [Recovered/Resolved]
